FAERS Safety Report 7649513-X (Version None)
Quarter: 2011Q3

REPORT INFORMATION
  Report Type: 
  Country: None (occurrence: None)
  Receive Date: 20110727
  Receipt Date: 20110711
  Transmission Date: 20111222
  Serious: Yes (Life-Threatening, Other)
  Sender: FDA-Public Use
  Company Number: 2011MA008652

PATIENT
  Age: 52 Year
  Sex: Female

DRUGS (8)
  1. OPIOID [Suspect]
     Indication: SEDATION
  2. LIDOCAINE [Suspect]
     Indication: ANAESTHESIA
     Dosage: 13 ML
  3. BARBITURATE [Suspect]
     Indication: PAIN
  4. DIAZEPAM [Suspect]
     Indication: SEDATION
     Dosage: IV
     Route: 042
  5. NEUTOLEPTIC [Suspect]
     Indication: PAIN
  6. EPINEPHRINE [Suspect]
     Indication: ANAESTHESIA
     Dosage: 0.065 MG
  7. PROPRANOLOL HCL [Suspect]
     Indication: HYPERTENSION
     Dosage: 40 MG; BID
  8. HYDROXYZINE HCL [Suspect]

REACTIONS (2)
  - CARDIAC ARREST [None]
  - HYPERTENSIVE CRISIS [None]
